FAERS Safety Report 14728704 (Version 2)
Quarter: 2018Q2

REPORT INFORMATION
  Report Type: Spontaneous
  Country: US (occurrence: US)
  Receive Date: 20180406
  Receipt Date: 20180419
  Transmission Date: 20180711
  Serious: No
  Sender: FDA-Public Use
  Company Number: US-VERTEX PHARMACEUTICALS-2018-002237

PATIENT
  Age: 27 Year
  Sex: Male

DRUGS (10)
  1. SYMDEKO [Suspect]
     Active Substance: IVACAFTOR\TEZACAFTOR
     Dosage: FULL DOSE
     Route: 048
     Dates: start: 20180411
  2. AZITHROMYCIN ANHYDROUS. [Concomitant]
     Active Substance: AZITHROMYCIN ANHYDROUS
  3. HYPERTONIC SALINE SOLUTION [Concomitant]
     Active Substance: SODIUM CHLORIDE
  4. CREON [Concomitant]
     Active Substance: PANCRELIPASE AMYLASE\PANCRELIPASE LIPASE\PANCRELIPASE PROTEASE
  5. PRILOSEC [Concomitant]
     Active Substance: OMEPRAZOLE MAGNESIUM
  6. SYMDEKO [Suspect]
     Active Substance: IVACAFTOR\TEZACAFTOR
     Dosage: ONE TABLET IN MORNING
     Route: 048
     Dates: start: 20180326, end: 201804
  7. ATROVENT [Concomitant]
     Active Substance: IPRATROPIUM BROMIDE
  8. ALBUTEROL                          /00139501/ [Concomitant]
     Active Substance: ALBUTEROL
  9. SYMDEKO [Suspect]
     Active Substance: IVACAFTOR\TEZACAFTOR
     Indication: CYSTIC FIBROSIS
     Dosage: TEZACAFTOR 100MG/IVACAFTOR 150MG AM; IVACAFTOR 150MG PM
     Route: 048
     Dates: start: 20180308, end: 201803
  10. DORNASE [Concomitant]
     Active Substance: STREPTODORNASE\STREPTOKINASE

REACTIONS (2)
  - Nausea [Recovered/Resolved]
  - Dizziness [Recovered/Resolved]

NARRATIVE: CASE EVENT DATE: 20180315
